FAERS Safety Report 21181107 (Version 2)
Quarter: 2024Q3

REPORT INFORMATION
  Report Type: Spontaneous
  Country: US (occurrence: US)
  Receive Date: 20220806
  Receipt Date: 20240802
  Transmission Date: 20241017
  Serious: No
  Sender: SANOFI AVENTIS
  Company Number: US-SA-SAC20220728001719

PATIENT
  Age: 51 Year
  Sex: Female

DRUGS (1)
  1. DUPIXENT [Suspect]
     Active Substance: DUPILUMAB
     Indication: Dermatitis atopic
     Dosage: 300 MG, QOW
     Route: 058
     Dates: start: 202002

REACTIONS (8)
  - Sleep disorder due to a general medical condition [Unknown]
  - Gait disturbance [Unknown]
  - Photosensitivity reaction [Unknown]
  - Condition aggravated [Unknown]
  - Erythema [Unknown]
  - Blister [Unknown]
  - Skin swelling [Unknown]
  - Arthralgia [Not Recovered/Not Resolved]
